FAERS Safety Report 6906976-2 (Version None)
Quarter: 2010Q3

REPORT INFORMATION
  Report Type: 
  Country: None (occurrence: None)
  Receive Date: 20100804
  Receipt Date: 20080526
  Transmission Date: 20110219
  Serious: No
  Sender: FDA-Public Use
  Company Number: US-PFIZER INC-2008046251

PATIENT
  Age: 55 Year
  Sex: Female

DRUGS (1)
  1. SELZENTRY [Suspect]
     Indication: ANTIRETROVIRAL THERAPY
     Dates: start: 20080401, end: 20080501

REACTIONS (1)
  - CONSTIPATION [None]
